FAERS Safety Report 12440976 (Version 1)
Quarter: 2016Q2

REPORT INFORMATION
  Report Type: Spontaneous
  Country: FR (occurrence: FR)
  Receive Date: 20160607
  Receipt Date: 20160607
  Transmission Date: 20160815
  Serious: Yes (Other)
  Sender: FDA-Public Use
  Company Number: FR-BIOGEN-2016BI00207177

PATIENT
  Age: 64 Year
  Sex: Female

DRUGS (1)
  1. TYSABRI [Suspect]
     Active Substance: NATALIZUMAB
     Indication: MULTIPLE SCLEROSIS
     Route: 042
     Dates: end: 20160126

REACTIONS (6)
  - Plasma cell myeloma [Not Recovered/Not Resolved]
  - General symptom [Unknown]
  - Myelitis [Unknown]
  - Back pain [Unknown]
  - Multiple sclerosis relapse [Unknown]
  - Spinal cord compression [Unknown]

NARRATIVE: CASE EVENT DATE: 201601
